FAERS Safety Report 9736231 (Version 1)
Quarter: 2013Q4

REPORT INFORMATION
  Report Type: Other
  Country: PT (occurrence: PT)
  Receive Date: 20131206
  Receipt Date: 20131206
  Transmission Date: 20140711
  Serious: Yes (Hospitalization)
  Sender: FDA-Public Use
  Company Number: PT-BRISTOL-MYERS SQUIBB COMPANY-19886605

PATIENT
  Sex: 0

DRUGS (1)
  1. METFORMIN HCL [Suspect]
     Indication: DIABETES MELLITUS

REACTIONS (3)
  - Renal failure acute [Unknown]
  - Sepsis [Unknown]
  - Lactic acidosis [Unknown]
